FAERS Safety Report 20451748 (Version 5)
Quarter: 2022Q1

REPORT INFORMATION
  Report Type: Spontaneous
  Country: CZ (occurrence: CZ)
  Receive Date: 20220209
  Receipt Date: 20220222
  Transmission Date: 20220423
  Serious: Yes (Hospitalization, Other)
  Sender: FDA-Public Use
  Company Number: CZ-BoehringerIngelheim-2022-BI-151900

PATIENT
  Age: 79 Year
  Sex: Female
  Weight: 70 kg

DRUGS (12)
  1. PRADAXA [Suspect]
     Active Substance: DABIGATRAN ETEXILATE MESYLATE
     Indication: Atrial fibrillation
     Route: 048
     Dates: start: 20190301, end: 20220117
  2. Nakom Mitte [Concomitant]
     Indication: Product used for unknown indication
     Dosage: 1-0-1
     Route: 048
  3. Propanorm 150mg [Concomitant]
     Indication: Product used for unknown indication
     Dosage: 1-0-1/2
     Route: 048
  4. CITALOPRAM [Concomitant]
     Active Substance: CITALOPRAM HYDROBROMIDE
     Indication: Product used for unknown indication
     Dosage: 1-0-0
     Route: 048
  5. EUTHYROX [Concomitant]
     Active Substance: LEVOTHYROXINE SODIUM
     Indication: Product used for unknown indication
     Dosage: EUTHYROX 112MCG  1-0-0 MONDAY, THURSDAY,
     Route: 048
  6. EUTHYROX [Concomitant]
     Active Substance: LEVOTHYROXINE SODIUM
     Dosage: EUTYHROX 125MCG  1-0-0 TUESDAY, WEDNESDAY, FRIDAY, SATURDAY, SUNDAY,
     Route: 048
  7. Nolpaza 20mg [Concomitant]
     Indication: Product used for unknown indication
     Dosage: 1-0-0
     Route: 048
  8. PERINDOPRIL ARGININE [Concomitant]
     Active Substance: PERINDOPRIL ARGININE
     Indication: Product used for unknown indication
     Dosage: 1-0-0
     Route: 048
  9. MODURETIC 5-50 [Concomitant]
     Active Substance: AMILORIDE HYDROCHLORIDE\HYDROCHLOROTHIAZIDE
     Indication: Product used for unknown indication
     Dosage: 1-2-0-0
     Route: 048
  10. KCL [Concomitant]
     Active Substance: POTASSIUM CHLORIDE
     Indication: Product used for unknown indication
     Dosage: 0-1-0
     Route: 048
  11. Magnosile lactici [Concomitant]
     Indication: Product used for unknown indication
     Dosage: 0-1-0
  12. Neurol [Concomitant]
     Indication: Product used for unknown indication

REACTIONS (1)
  - Ileus [Recovering/Resolving]

NARRATIVE: CASE EVENT DATE: 20220201
